FAERS Safety Report 4408406-1 (Version None)
Quarter: 2004Q3

REPORT INFORMATION
  Report Type: 
  Country: None (occurrence: None)
  Receive Date: 20040722
  Receipt Date: 20040709
  Transmission Date: 20050211
  Serious: Yes (Hospitalization)
  Sender: FDA-Public Use
  Company Number: 232727K04USA

PATIENT
  Age: 35 Year
  Sex: Female

DRUGS (5)
  1. REBIF [Suspect]
     Indication: MULTIPLE SCLEROSIS
     Dosage: 22 MCG, SUBCUTANEOUS
     Route: 058
     Dates: start: 20040101, end: 20040101
  2. REBIF [Suspect]
     Indication: MULTIPLE SCLEROSIS
     Dosage: 22 MCG, SUBCUTANEOUS
     Route: 058
     Dates: start: 20040407, end: 20040501
  3. FLOMAX [Concomitant]
  4. DARVOCET-N (PROPACET) [Concomitant]
  5. TYLENOL [Concomitant]

REACTIONS (8)
  - ADVERSE EVENT [None]
  - ANXIETY [None]
  - DYSPNOEA [None]
  - HEADACHE [None]
  - MULTIPLE SCLEROSIS RELAPSE [None]
  - PRURITUS GENERALISED [None]
  - RASH [None]
  - TREATMENT NONCOMPLIANCE [None]
